FAERS Safety Report 7163011-1 (Version None)
Quarter: 2010Q4

REPORT INFORMATION
  Report Type: 
  Country: None (occurrence: None)
  Receive Date: 20101215
  Receipt Date: 20101203
  Transmission Date: 20110411
  Serious: Yes (Death)
  Sender: FDA-Public Use
  Company Number: JP-AMGEN-JPNCT2010003468

PATIENT

DRUGS (13)
  1. PANITUMUMAB [Suspect]
     Indication: COLORECTAL CANCER
     Dosage: 6 MG/KG, Q2WK
     Route: 041
     Dates: start: 20100713, end: 20100921
  2. PYDOXAL [Concomitant]
     Route: 048
  3. MINOMYCIN [Concomitant]
     Route: 048
  4. HIRUDOID SOFT [Concomitant]
     Route: 062
  5. ANTEBATE OINTMENT [Concomitant]
     Route: 062
  6. DUROTEP [Concomitant]
     Route: 062
  7. OXINORM [Concomitant]
     Route: 048
  8. NORVASC [Concomitant]
     Route: 048
  9. AZELASTINE HCL [Concomitant]
     Route: 048
  10. THYRADIN S [Concomitant]
     Route: 048
  11. FRANDOL TAPE [Concomitant]
     Route: 062
  12. THEO-DUR [Concomitant]
     Route: 048
  13. ADOAIR [Concomitant]
     Route: 055

REACTIONS (2)
  - ASTHMA [None]
  - CEREBRAL INFARCTION [None]
